FAERS Safety Report 22391758 (Version 1)
Quarter: 2023Q2

REPORT INFORMATION
  Report Type: Spontaneous
  Country: MA (occurrence: MA)
  Receive Date: 20230601
  Receipt Date: 20230601
  Transmission Date: 20230722
  Serious: Yes (Life-Threatening, Hospitalization)
  Sender: FDA-Public Use
  Company Number: MA-MACLEODS PHARMACEUTICALS US LTD-MAC2023041566

PATIENT

DRUGS (12)
  1. PYRAZINAMIDE [Suspect]
     Active Substance: PYRAZINAMIDE
     Indication: Pulmonary tuberculosis
     Dosage: 1500 MILLIGRAM
     Route: 065
  2. ISONIAZID [Suspect]
     Active Substance: ISONIAZID
     Indication: Pulmonary tuberculosis
     Dosage: 150 MILLIGRAM, QD
     Route: 065
  3. ISONIAZID [Suspect]
     Active Substance: ISONIAZID
     Dosage: UNK, DESENSITIZATION PROTOCOL FOR INH (STARTING AT A DOSE OF 10 TO THE POWER OF SIX)
     Route: 065
  4. ISONIAZID [Suspect]
     Active Substance: ISONIAZID
     Dosage: 3 MILLIGRAM
     Route: 065
  5. RIFAMPIN [Suspect]
     Active Substance: RIFAMPIN
     Indication: Pulmonary tuberculosis
     Dosage: 600 MILLIGRAM
     Route: 065
  6. ETHAMBUTOL\ISONIAZID\PYRAZINAMIDE\RIFAMPIN [Suspect]
     Active Substance: ETHAMBUTOL\ETHAMBUTOL DIHYDROCHLORIDE, DL-\ISONIAZID\PYRAZINAMIDE\RIFAMPIN\RIFAMPIN SODIUM
     Indication: Pulmonary tuberculosis
     Dosage: 3 DOSAGE FORM, QD (RFP 450 MG PER DAY, INH 225 MG PER DAY, PZA 1200 MG PER DAY, AND ETB 825 MG PER D
     Route: 065
  7. HYDROXYCHLOROQUINE [Concomitant]
     Active Substance: HYDROXYCHLOROQUINE
     Indication: Systemic lupus erythematosus
     Dosage: UNK (SINCE THE AGE OF 14)
     Route: 065
  8. ETHAMBUTOL [Concomitant]
     Active Substance: ETHAMBUTOL HYDROCHLORIDE
     Indication: Pulmonary tuberculosis
     Dosage: 1000 MILLIGRAM (IT WAS STOPPED)
     Route: 065
  9. ETHAMBUTOL [Concomitant]
     Active Substance: ETHAMBUTOL HYDROCHLORIDE
     Dosage: 1000 MILLIGRAM
     Route: 065
  10. ETHAMBUTOL [Concomitant]
     Active Substance: ETHAMBUTOL HYDROCHLORIDE
     Dosage: 800 MILLIGRAM
     Route: 065
  11. LEVOFLOXACIN [Concomitant]
     Active Substance: LEVOFLOXACIN
     Indication: Pulmonary tuberculosis
     Dosage: 500 MILLIGRAM
     Route: 065
  12. KANAMYCIN [Concomitant]
     Active Substance: KANAMYCIN A SULFATE
     Indication: Pulmonary tuberculosis
     Dosage: 500 MILLIGRAM, QD
     Route: 065

REACTIONS (4)
  - Anaphylactic shock [Recovered/Resolved]
  - Alanine aminotransferase increased [Recovered/Resolved]
  - Aspartate aminotransferase increased [Recovered/Resolved]
  - Hepatic function abnormal [Recovered/Resolved]
